FAERS Safety Report 4726902-4 (Version None)
Quarter: 2005Q3

REPORT INFORMATION
  Report Type: 
  Country: None (occurrence: None)
  Receive Date: 20050726
  Receipt Date: 20050308
  Transmission Date: 20060218
  Serious: Yes (Other)
  Sender: FDA-Public Use
  Company Number: MED000045

PATIENT
  Age: 74 Year
  Sex: Male

DRUGS (1)
  1. HEPARIN SODIUM [Suspect]
     Indication: CORONARY ARTERY SURGERY

REACTIONS (6)
  - ANTIBODY TEST POSITIVE [None]
  - ATRIAL FIBRILLATION [None]
  - CARDIAC ARREST [None]
  - FLUID OVERLOAD [None]
  - POST PROCEDURAL COMPLICATION [None]
  - THROMBOCYTOPENIA [None]
